FAERS Safety Report 15262177 (Version 1)
Quarter: 2018Q3

REPORT INFORMATION
  Report Type: Spontaneous
  Country: SE (occurrence: SE)
  Receive Date: 20180809
  Receipt Date: 20180809
  Transmission Date: 20181010
  Serious: Yes (Disabling)
  Sender: FDA-Public Use
  Company Number: SE-009507513-1808SWE003492

PATIENT
  Sex: Male
  Weight: 85 kg

DRUGS (9)
  1. CALCICHEW D3 CITRON [Concomitant]
  2. TRAMADOL. [Concomitant]
     Active Substance: TRAMADOL
  3. PREDNISOLON [Concomitant]
     Active Substance: PREDNISOLONE
  4. LOSARTAN POTASSIUM. [Suspect]
     Active Substance: LOSARTAN POTASSIUM
     Indication: HYPERTENSION
     Dosage: 50 MG, IN THE MORNING AND IN THE EVENING
  5. OMEPRAZOLE. [Concomitant]
     Active Substance: OMEPRAZOLE
  6. XARELTO [Concomitant]
     Active Substance: RIVAROXABAN
  7. BEVIPLEX FORTE [Concomitant]
  8. NEBIDO [Concomitant]
     Active Substance: TESTOSTERONE UNDECANOATE
  9. CYMBALTA [Concomitant]
     Active Substance: DULOXETINE HYDROCHLORIDE

REACTIONS (3)
  - Skin odour abnormal [Not Recovered/Not Resolved]
  - Urine odour abnormal [Not Recovered/Not Resolved]
  - Abnormal faeces [Not Recovered/Not Resolved]
